FAERS Safety Report 26000930 (Version 1)
Quarter: 2025Q4

REPORT INFORMATION
  Report Type: Spontaneous
  Country: CN (occurrence: CN)
  Receive Date: 20251105
  Receipt Date: 20251105
  Transmission Date: 20260118
  Serious: Yes (Other)
  Sender: BRACCO
  Company Number: CN-BRACCO-2025CN07508

PATIENT
  Age: 76 Year
  Sex: Female

DRUGS (1)
  1. IOMERON [Suspect]
     Active Substance: IOMEPROL
     Indication: Angiogram
     Dosage: WEIGHT-BASED DOSAGE, SINGLE
     Route: 042
     Dates: start: 20251027, end: 20251027

REACTIONS (5)
  - Unresponsive to stimuli [Recovering/Resolving]
  - Oxygen saturation decreased [Recovering/Resolving]
  - Gait inability [Recovering/Resolving]
  - Cold sweat [Recovering/Resolving]
  - Productive cough [Recovering/Resolving]

NARRATIVE: CASE EVENT DATE: 20251027
